FAERS Safety Report 12167621 (Version 1)
Quarter: 2016Q1

REPORT INFORMATION
  Report Type: Spontaneous
  Country: US (occurrence: None)
  Receive Date: 20160309
  Receipt Date: 20160309
  Transmission Date: 20160526
  Serious: Yes (Hospitalization)
  Sender: FDA-Public Use
  Company Number: None

PATIENT
  Age: 57 Year
  Sex: Male
  Weight: 91.9 kg

DRUGS (13)
  1. NIFEDIPINE. [Concomitant]
     Active Substance: NIFEDIPINE
  2. COLACE [Concomitant]
     Active Substance: DOCUSATE SODIUM
  3. ATORVASTATIN [Concomitant]
     Active Substance: ATORVASTATIN
  4. HARVONI [Suspect]
     Active Substance: LEDIPASVIR\SOFOSBUVIR
     Indication: HEPATITIS C
     Dosage: 90/400MG  1XDAILY
     Route: 048
     Dates: start: 20150626, end: 20151218
  5. SULFAMETHOXAZOLE-TRIMETHOPRIN [Concomitant]
  6. ACYCLOVIR. [Concomitant]
     Active Substance: ACYCLOVIR
  7. LANTUS [Concomitant]
     Active Substance: INSULIN GLARGINE
  8. MYCOPHENOLATE MOFETIL. [Concomitant]
     Active Substance: MYCOPHENOLATE MOFETIL
  9. CARVEDILOL. [Concomitant]
     Active Substance: CARVEDILOL
  10. LYRICA [Concomitant]
     Active Substance: PREGABALIN
  11. TACROLIMUS. [Concomitant]
     Active Substance: TACROLIMUS
  12. PRANDIN [Concomitant]
     Active Substance: REPAGLINIDE
  13. ASPIRIN. [Concomitant]
     Active Substance: ASPIRIN

REACTIONS (2)
  - Hyperglycaemia [None]
  - Muscle spasms [None]

NARRATIVE: CASE EVENT DATE: 20150714
